FAERS Safety Report 6801570-6 (Version None)
Quarter: 2010Q2

REPORT INFORMATION
  Report Type: 
  Country: None (occurrence: None)
  Receive Date: 20100629
  Receipt Date: 20100615
  Transmission Date: 20101027
  Serious: Yes (Hospitalization)
  Sender: FDA-Public Use
  Company Number: GB-MYLANLABS-2010S1010722

PATIENT
  Age: 44 Year
  Sex: Female

DRUGS (6)
  1. CETIRIZINE HCL [Suspect]
     Indication: SEASONAL ALLERGY
     Route: 048
     Dates: start: 20100525, end: 20100528
  2. BENDROFLUMETHIAZIDE [Concomitant]
     Dates: start: 20100525
  3. BENDROFLUMETHIAZIDE [Concomitant]
     Dates: end: 20100515
  4. IBUPROFEN [Concomitant]
     Dates: start: 20100525
  5. NORETHISTERONE [Concomitant]
  6. ACETAMINOPHEN [Concomitant]
     Dates: start: 20100525

REACTIONS (3)
  - JAUNDICE [None]
  - LIVER FUNCTION TEST ABNORMAL [None]
  - MALAISE [None]
